FAERS Safety Report 5116224-4 (Version None)
Quarter: 2006Q3

REPORT INFORMATION
  Report Type: 
  Country: None (occurrence: None)
  Receive Date: 20060927
  Receipt Date: 20060822
  Transmission Date: 20061208
  Serious: Yes (Other)
  Sender: FDA-Public Use
  Company Number: US-GLAXOSMITHKLINE-A0617682A

PATIENT
  Age: 75 Year
  Sex: Female

DRUGS (6)
  1. AVANDIA [Suspect]
     Indication: DIABETES MELLITUS NON-INSULIN-DEPENDENT
     Dosage: 4MG PER DAY
     Route: 048
     Dates: end: 20060801
  2. TOPROL-XL [Concomitant]
  3. SULAR [Concomitant]
  4. COZAAR [Concomitant]
  5. GLIPIZIDE [Concomitant]
  6. ZOCOR [Concomitant]

REACTIONS (4)
  - EYE SWELLING [None]
  - MACULAR OEDEMA [None]
  - VISION BLURRED [None]
  - VISUAL DISTURBANCE [None]
